FAERS Safety Report 5566493-1 (Version None)
Quarter: 2007Q4

REPORT INFORMATION
  Report Type: 
  Country: None (occurrence: None)
  Receive Date: 20071219
  Receipt Date: 20071213
  Transmission Date: 20080405
  Serious: Yes (Other)
  Sender: FDA-Public Use
  Company Number: DE-BAUSCH-2007BL004174

PATIENT
  Age: 70 Year
  Sex: Male

DRUGS (3)
  1. TIMOMANN 0.25% AUGENTROPFEN [Suspect]
     Indication: GLAUCOMA
     Route: 047
     Dates: start: 20061101
  2. SORTIS ^GOEDECKE^ [Concomitant]
     Indication: HYPERCHOLESTEROLAEMIA
  3. PLAVIX [Concomitant]
     Indication: PLATELET AGGREGATION INHIBITION

REACTIONS (1)
  - IVTH NERVE PARESIS [None]
